FAERS Safety Report 21992985 (Version 2)
Quarter: 2023Q1

REPORT INFORMATION
  Report Type: Report from Study
  Country: US (occurrence: US)
  Receive Date: 20230215
  Receipt Date: 20230221
  Transmission Date: 20230418
  Serious: No
  Sender: FDA-Public Use
  Company Number: US-002147023-NVSC2023US032077

PATIENT
  Sex: Male

DRUGS (3)
  1. ENTRESTO [Suspect]
     Active Substance: SACUBITRIL\VALSARTAN
     Indication: Product used for unknown indication
     Dosage: 0.5 DOSAGE FORM, BID (1/2 TABLET OF 24/26MG)
     Route: 065
     Dates: start: 202211
  2. ENTRESTO [Suspect]
     Active Substance: SACUBITRIL\VALSARTAN
     Dosage: 300 MG, QD (ONE TABLET 49/51MG IN THE MORNING AND ONE TABLET OF 97/103MG IN THE EVENING)
     Route: 065
  3. ENTRESTO [Suspect]
     Active Substance: SACUBITRIL\VALSARTAN
     Dosage: 1 DOSAGE FORM, BID (97/103 MG)
     Route: 048

REACTIONS (7)
  - Headache [Unknown]
  - Malaise [Recovered/Resolved]
  - Fatigue [Unknown]
  - Inappropriate schedule of product administration [Unknown]
  - Wrong technique in product usage process [Unknown]
  - Prescribed underdose [Unknown]
  - Incorrect dose administered [Unknown]
